FAERS Safety Report 9031905 (Version 2)
Quarter: 2013Q1

REPORT INFORMATION
  Report Type: Other
  Country: CL (occurrence: CL)
  Receive Date: 20130125
  Receipt Date: 20130210
  Transmission Date: 20140127
  Serious: Yes (Hospitalization)
  Sender: FDA-Public Use
  Company Number: CL-BRISTOL-MYERS SQUIBB COMPANY-17288051

PATIENT
  Sex: Male

DRUGS (1)
  1. MITOMYCIN-C [Suspect]
     Indication: BLADDER CANCER
     Route: 043

REACTIONS (2)
  - Histology abnormal [Unknown]
  - Bladder neoplasm [Unknown]
